FAERS Safety Report 13871120 (Version 5)
Quarter: 2017Q4

REPORT INFORMATION
  Report Type: Spontaneous
  Country: FR (occurrence: FR)
  Receive Date: 20170816
  Receipt Date: 20171204
  Transmission Date: 20180320
  Serious: Yes (Hospitalization)
  Sender: FDA-Public Use
  Company Number: FR-CELGENEUS-FRA-20170705004

PATIENT
  Age: 80 Year
  Sex: Female
  Weight: 52 kg

DRUGS (13)
  1. DEXAMETHASONE ORAL [Suspect]
     Active Substance: DEXAMETHASONE
     Indication: PLASMA CELL MYELOMA
     Dosage: 20 MG
     Route: 048
     Dates: start: 20160212, end: 20160321
  2. DESLORATADINE. [Concomitant]
     Active Substance: DESLORATADINE
     Indication: RASH MACULO-PAPULAR
     Route: 065
     Dates: start: 20160225, end: 20160226
  3. REVLIMID [Suspect]
     Active Substance: LENALIDOMIDE
     Dosage: 15 MG
     Route: 048
     Dates: start: 20160321
  4. REVLIMID [Suspect]
     Active Substance: LENALIDOMIDE
     Indication: PLASMA CELL MYELOMA
     Dosage: 15MG
     Route: 048
     Dates: start: 20160212, end: 20160224
  5. LOVENOX [Concomitant]
     Active Substance: ENOXAPARIN SODIUM
     Indication: THROMBOSIS PROPHYLAXIS
     Dosage: 4000 IU (INTERNATIONAL UNIT)
     Route: 058
     Dates: start: 20160212
  6. TRIMETHOPRIM. [Concomitant]
     Active Substance: TRIMETHOPRIM
     Indication: ANTIBIOTIC PROPHYLAXIS
     Dosage: 160 MG
     Route: 048
     Dates: start: 20160212
  7. SULFAMETHOXAZOLE [Concomitant]
     Active Substance: SULFAMETHOXAZOLE
     Indication: ANTIBIOTIC PROPHYLAXIS
     Dosage: 800 MG
     Route: 048
     Dates: start: 20160212
  8. RAMIPRIL. [Concomitant]
     Active Substance: RAMIPRIL
     Indication: HYPERTENSION
     Dosage: 5 MILLIGRAM
     Route: 048
     Dates: start: 1958
  9. RAMIPRIL. [Concomitant]
     Active Substance: RAMIPRIL
     Dosage: 2.5 MILLIGRAM
     Route: 048
     Dates: start: 20160317
  10. PAROXETINE. [Concomitant]
     Active Substance: PAROXETINE
     Indication: DEPRESSION
     Dosage: 20 MILLIGRAM
     Route: 048
     Dates: start: 201601
  11. PARACETAMOL [Concomitant]
     Active Substance: ACETAMINOPHEN
     Indication: PAIN IN EXTREMITY
     Dosage: 3000 MILLIGRAM
     Route: 048
     Dates: start: 201601
  12. PANTOPRAZOLE [Concomitant]
     Active Substance: PANTOPRAZOLE
     Indication: GASTROOESOPHAGEAL REFLUX DISEASE
     Dosage: 20 MILLIGRAM
     Route: 048
     Dates: start: 20160212
  13. BACTRIM [Concomitant]
     Active Substance: SULFAMETHOXAZOLE\TRIMETHOPRIM
     Indication: INFECTION PROPHYLAXIS
     Route: 048
     Dates: start: 20160212

REACTIONS (3)
  - Anaemia [Recovered/Resolved]
  - Bone pain [Recovered/Resolved]
  - Febrile neutropenia [Recovered/Resolved]

NARRATIVE: CASE EVENT DATE: 20160224
